FAERS Safety Report 8460657-5 (Version None)
Quarter: 2012Q2

REPORT INFORMATION
  Report Type: 
  Country: None (occurrence: None)
  Receive Date: 20120622
  Receipt Date: 20120614
  Transmission Date: 20120825
  Serious: Yes (Other)
  Sender: FDA-Public Use
  Company Number: CA-ROCHE-GNE270153

PATIENT
  Sex: Female
  Weight: 65.07 kg

DRUGS (1)
  1. OMALIZUMAB [Suspect]
     Indication: ASTHMA
     Route: 058
     Dates: start: 20080415

REACTIONS (8)
  - SECRETION DISCHARGE [None]
  - ASPERGILLOSIS [None]
  - LUNG INFILTRATION [None]
  - DYSPHONIA [None]
  - HYPERTENSION [None]
  - PRODUCTIVE COUGH [None]
  - COUGH [None]
  - SPUTUM DISCOLOURED [None]
